FAERS Safety Report 4447565-1 (Version None)
Quarter: 2004Q3

REPORT INFORMATION
  Report Type: 
  Country: None (occurrence: None)
  Receive Date: 20040812
  Receipt Date: 20040701
  Transmission Date: 20050211
  Serious: No
  Sender: FDA-Public Use
  Company Number: USA040771596

PATIENT
  Sex: Male

DRUGS (1)
  1. CIALIS [Suspect]

REACTIONS (3)
  - ARTHRALGIA [None]
  - MYALGIA [None]
  - VIRAL INFECTION [None]
